FAERS Safety Report 7341151-1 (Version None)
Quarter: 2011Q1

REPORT INFORMATION
  Report Type: 
  Country: None (occurrence: None)
  Receive Date: 20110309
  Receipt Date: 20110301
  Transmission Date: 20110831
  Serious: Yes (Other)
  Sender: FDA-Public Use
  Company Number: A0917192A

PATIENT
  Age: 26 Year
  Sex: Female
  Weight: 84 kg

DRUGS (2)
  1. ZYBAN [Suspect]
     Indication: SMOKING CESSATION THERAPY
     Dosage: 150MG TWICE PER DAY
     Route: 048
     Dates: start: 20110219, end: 20110223
  2. NAPROSYN [Concomitant]
     Dosage: 375MG TWICE PER DAY

REACTIONS (3)
  - DISABILITY [None]
  - SELF-INJURIOUS IDEATION [None]
  - HOMICIDAL IDEATION [None]
